FAERS Safety Report 5800441-1 (Version None)
Quarter: 2008Q3

REPORT INFORMATION
  Report Type: 
  Country: None (occurrence: None)
  Receive Date: 20080703
  Receipt Date: 20080625
  Transmission Date: 20090109
  Serious: Yes (Hospitalization)
  Sender: FDA-Public Use
  Company Number: US-BAYER-200824134NA

PATIENT
  Age: 36 Year
  Sex: Female
  Weight: 54 kg

DRUGS (6)
  1. AVELOX [Suspect]
     Indication: INGROWING NAIL
     Dosage: TOTAL DAILY DOSE: 800 MG  UNIT DOSE: 400 MG
     Route: 048
     Dates: start: 20080409, end: 20080418
  2. FLAGYL [Concomitant]
  3. NAPROSYN [Concomitant]
  4. DIFLUCAN [Concomitant]
  5. QUESTRAN [Concomitant]
  6. ROBINUL [Concomitant]

REACTIONS (7)
  - ABDOMINAL PAIN UPPER [None]
  - CLOSTRIDIAL INFECTION [None]
  - DIARRHOEA [None]
  - HAEMATOCHEZIA [None]
  - TINNITUS [None]
  - VOMITING [None]
  - WEIGHT DECREASED [None]
